FAERS Safety Report 23913507 (Version 1)
Quarter: 2024Q2

REPORT INFORMATION
  Report Type: Spontaneous
  Country: VN (occurrence: None)
  Receive Date: 20240529
  Receipt Date: 20240529
  Transmission Date: 20240716
  Serious: Yes (Other)
  Sender: FDA-Public Use
  Company Number: VN-ROCHE-3568498

PATIENT
  Sex: Female

DRUGS (2)
  1. TRASTUZUMAB [Suspect]
     Active Substance: TRASTUZUMAB
     Indication: HER2 positive breast cancer
     Dosage: ENDED IN IN /MAR/2019
     Route: 065
  2. PACLITAXEL [Suspect]
     Active Substance: PACLITAXEL
     Indication: HER2 positive breast cancer
     Dosage: ENDED IN IN /MAR/2019
     Route: 065

REACTIONS (6)
  - Thyroid cancer metastatic [Unknown]
  - Anaemia [Unknown]
  - Iron deficiency [Unknown]
  - Menstrual disorder [Unknown]
  - Neuropathy peripheral [Unknown]
  - Alopecia [Unknown]

NARRATIVE: CASE EVENT DATE: 20230901
